FAERS Safety Report 9778853 (Version 1)
Quarter: 2013Q4

REPORT INFORMATION
  Report Type: Spontaneous
  Country: FR (occurrence: FR)
  Receive Date: 20131223
  Receipt Date: 20131223
  Transmission Date: 20140711
  Serious: Yes (Congenital Anomaly)
  Sender: FDA-Public Use
  Company Number: FR-PFIZER INC-2013360313

PATIENT
  Sex: Male

DRUGS (2)
  1. EFFEXOR LP [Suspect]
     Indication: DEPRESSION
     Dosage: UNK
     Dates: start: 2010
  2. EFFEXOR LP [Suspect]
     Dosage: 215 MG, DAILY
     Route: 064
     Dates: start: 20121020, end: 20130619

REACTIONS (4)
  - Maternal exposure timing unspecified [Unknown]
  - Eyelid ptosis [Unknown]
  - Hypermetropia [Unknown]
  - Premature baby [Unknown]
